FAERS Safety Report 11619126 (Version 3)
Quarter: 2015Q4

REPORT INFORMATION
  Report Type: Report from Study
  Country: BR (occurrence: BR)
  Receive Date: 20151012
  Receipt Date: 20151125
  Transmission Date: 20160304
  Serious: Yes (Other)
  Sender: FDA-Public Use
  Company Number: PHHY2015BR122831

PATIENT
  Age: 85 Year
  Sex: Female
  Weight: 90 kg

DRUGS (2)
  1. EXELON PATCH [Suspect]
     Active Substance: RIVASTIGMINE
     Indication: DEMENTIA ALZHEIMER^S TYPE
  2. EXELON PATCH [Suspect]
     Active Substance: RIVASTIGMINE
     Indication: SENILE DEMENTIA
     Dosage: PATCH 5 CM2
     Route: 062

REACTIONS (7)
  - Ischaemia [Not Recovered/Not Resolved]
  - Disorientation [Not Recovered/Not Resolved]
  - Memory impairment [Not Recovered/Not Resolved]
  - Amnesia [Not Recovered/Not Resolved]
  - Aggression [Not Recovered/Not Resolved]
  - Somnolence [Not Recovered/Not Resolved]
  - Neurodegenerative disorder [Not Recovered/Not Resolved]
